FAERS Safety Report 19774880 (Version 3)
Quarter: 2021Q3

REPORT INFORMATION
  Report Type: Spontaneous
  Country: TR (occurrence: TR)
  Receive Date: 20210901
  Receipt Date: 20210913
  Transmission Date: 20211014
  Serious: Yes (Other)
  Sender: FDA-Public Use
  Company Number: TR-UCBSA-2021040325

PATIENT
  Age: 11 Year
  Sex: Male
  Weight: 77 kg

DRUGS (6)
  1. KEPPRA [Suspect]
     Active Substance: LEVETIRACETAM
     Dosage: 250 MILLIGRAM, 2X/DAY (BID)
     Dates: start: 202107
  2. KEPPRA [Suspect]
     Active Substance: LEVETIRACETAM
     Dosage: UNK DOSE, DECREASED FIRST TIME
     Dates: start: 202106
  3. KEPPRA [Suspect]
     Active Substance: LEVETIRACETAM
     Indication: PETIT MAL EPILEPSY
     Dosage: 250 MG PER DAY
     Dates: start: 202010
  4. KEPPRA [Suspect]
     Active Substance: LEVETIRACETAM
     Dosage: TOUCHED TO 1000 MG IN 6 MONTHS
  5. KEPPRA [Suspect]
     Active Substance: LEVETIRACETAM
     Indication: OFF LABEL USE
     Dosage: INCREASED TO 250 MG PER WEEK
  6. IRON OXIDES [Suspect]
     Active Substance: FERRIC OXIDE RED
     Indication: PRODUCT USED FOR UNKNOWN INDICATION
     Dosage: IRON OXIDE IN KEPPRA

REACTIONS (6)
  - Acne [Recovering/Resolving]
  - Insomnia [Unknown]
  - Eosinophilic colitis [Unknown]
  - Pain [Unknown]
  - Off label use [Unknown]
  - Haematochezia [Not Recovered/Not Resolved]

NARRATIVE: CASE EVENT DATE: 202010
